FAERS Safety Report 5636948-X (Version None)
Quarter: 2008Q1

REPORT INFORMATION
  Report Type: 
  Country: None (occurrence: None)
  Receive Date: 20080225
  Receipt Date: 20080214
  Transmission Date: 20080703
  Serious: Yes (Life-Threatening, Hospitalization)
  Sender: FDA-Public Use
  Company Number: ES-RANBAXY-2008US-13209

PATIENT

DRUGS (4)
  1. ISOPTIN SR [Suspect]
     Indication: DRUG USE FOR UNKNOWN INDICATION
     Dosage: 240 MG, UNK
     Route: 048
     Dates: end: 20060604
  2. CARDURAN NEO 4MG [Suspect]
     Indication: DRUG USE FOR UNKNOWN INDICATION
     Dosage: 4 MG, QD
     Route: 048
  3. COROPRES 25 [Suspect]
     Indication: DRUG USE FOR UNKNOWN INDICATION
     Dosage: 25 MG, BID
     Route: 048
     Dates: end: 20060604
  4. IXIA [Suspect]
     Indication: DRUG USE FOR UNKNOWN INDICATION
     Dosage: 40 MG, QD
     Route: 048

REACTIONS (3)
  - BRADYCARDIA [None]
  - HYPOTENSION [None]
  - SHOCK [None]
